FAERS Safety Report 7284338-9 (Version None)
Quarter: 2011Q1

REPORT INFORMATION
  Report Type: 
  Country: None (occurrence: None)
  Receive Date: 20110209
  Receipt Date: 20110204
  Transmission Date: 20110831
  Serious: Yes (Other)
  Sender: FDA-Public Use
  Company Number: JP-PFIZER INC-2011026502

PATIENT
  Age: 67 Year
  Sex: Male

DRUGS (2)
  1. FLIVAS [Concomitant]
  2. SUTENT [Suspect]
     Indication: METASTATIC RENAL CELL CARCINOMA
     Dosage: 50 MG, 1X/DAY
     Route: 048
     Dates: start: 20101215, end: 20110101

REACTIONS (1)
  - INTERSTITIAL LUNG DISEASE [None]
